FAERS Safety Report 8444695-4 (Version None)
Quarter: 2012Q2

REPORT INFORMATION
  Report Type: 
  Country: None (occurrence: None)
  Receive Date: 20120323
  Receipt Date: 20111223
  Transmission Date: 20120825
  Serious: Yes (Hospitalization)
  Sender: FDA-Public Use
  Company Number: 163-21880-11063040

PATIENT
  Age: 78 Year
  Sex: Male
  Weight: 72.5755 kg

DRUGS (3)
  1. REVLIMID [Suspect]
     Indication: MULTIPLE MYELOMA
     Dosage: 15 MG, DAILY X 21 DAYS THEN OFF 7, PO 15 MG, DAILY X 21 DAYS THEN OFF 7, PO
     Route: 048
     Dates: start: 20110611, end: 20110902
  2. REVLIMID [Suspect]
     Indication: MULTIPLE MYELOMA
     Dosage: 15 MG, DAILY X 21 DAYS THEN OFF 7, PO 15 MG, DAILY X 21 DAYS THEN OFF 7, PO
     Route: 048
     Dates: start: 20110906
  3. BLOOD TRANSFUSION (UNKNOWN) [Concomitant]

REACTIONS (5)
  - PYREXIA [None]
  - CHILLS [None]
  - HYPERHIDROSIS [None]
  - PNEUMONIA [None]
  - PAIN [None]
